FAERS Safety Report 5043139-2 (Version None)
Quarter: 2006Q2

REPORT INFORMATION
  Report Type: 
  Country: None (occurrence: None)
  Receive Date: 20060627
  Receipt Date: 20050614
  Transmission Date: 20061013
  Serious: Yes (Death, Hospitalization, Other)
  Sender: FDA-Public Use
  Company Number: 2006075816

PATIENT
  Age: 45 Year
  Sex: Male

DRUGS (4)
  1. ATORVASTATIN CALCIUM [Suspect]
     Indication: HYPERCHOLESTEROLAEMIA
     Dosage: DAILY
  2. COLCHICUM JTL LIQ [Suspect]
     Indication: AMYLOIDOSIS
     Dosage: DAILY
  3. THEOPHYLLINE [Concomitant]
  4. ALBUTEROL [Concomitant]

REACTIONS (7)
  - HAEMODIALYSIS [None]
  - PNEUMONIA [None]
  - RENAL FAILURE ACUTE [None]
  - RESPIRATORY FAILURE [None]
  - RHABDOMYOLYSIS [None]
  - SEPTIC SHOCK [None]
  - TROPONIN T INCREASED [None]
